FAERS Safety Report 10158691 (Version 1)
Quarter: 2014Q2

REPORT INFORMATION
  Report Type: Spontaneous
  Country: US (occurrence: US)
  Receive Date: 20140508
  Receipt Date: 20140508
  Transmission Date: 20141212
  Serious: No
  Sender: FDA-Public Use
  Company Number: US-BIOGENIDEC-2013BI057748

PATIENT
  Age: 58 Year
  Sex: Female

DRUGS (16)
  1. TECFIDERA [Suspect]
     Indication: MULTIPLE SCLEROSIS
     Route: 048
     Dates: start: 20130528
  2. TECFIDERA [Suspect]
     Indication: MULTIPLE SCLEROSIS
     Route: 048
     Dates: start: 201306
  3. AMANTADINE [Concomitant]
  4. BACLOFEN [Concomitant]
  5. LIPITOR [Concomitant]
  6. ARMOUR THYROID [Concomitant]
  7. ALBUTEROL SULFATE [Concomitant]
  8. ALEVE [Concomitant]
  9. CALCIUM CARBONATE [Concomitant]
  10. DIPHENHYDRAMINE [Concomitant]
  11. ECOTRIN [Concomitant]
  12. LIPITOR [Concomitant]
  13. MECLIZINE [Concomitant]
  14. TYLENOL [Concomitant]
  15. VITAMIN D [Concomitant]
  16. ZYRTEC [Concomitant]

REACTIONS (6)
  - Back pain [Unknown]
  - Extra dose administered [Unknown]
  - Flushing [Unknown]
  - Dyspepsia [Unknown]
  - Nausea [Unknown]
  - Abdominal pain upper [Unknown]
